FAERS Safety Report 7432897-5 (Version None)
Quarter: 2011Q2

REPORT INFORMATION
  Report Type: 
  Country: None (occurrence: None)
  Receive Date: 20110422
  Receipt Date: 20110413
  Transmission Date: 20111010
  Serious: Yes (Hospitalization)
  Sender: FDA-Public Use
  Company Number: NL-MEDIMMUNE-MEDI-0013103

PATIENT
  Sex: Male
  Weight: 3.005 kg

DRUGS (2)
  1. SYNAGIS [Suspect]
     Route: 030
     Dates: start: 20110413
  2. SYNAGIS [Suspect]
     Route: 030
     Dates: start: 20110314, end: 20110314

REACTIONS (3)
  - ABDOMINAL PAIN [None]
  - INGUINAL HERNIA [None]
  - INTESTINAL OBSTRUCTION [None]
